FAERS Safety Report 9049698 (Version 1)
Quarter: 2013Q1

REPORT INFORMATION
  Report Type: Spontaneous
  Country: US (occurrence: US)
  Receive Date: 20130205
  Receipt Date: 20130205
  Transmission Date: 20140127
  Serious: Yes (Death)
  Sender: FDA-Public Use
  Company Number: US-B.I. PHARMACEUTICALS,INC./RIDGEFIELD-2013-BI-02947BP

PATIENT
  Age: 60 None
  Sex: Male

DRUGS (5)
  1. SPIRIVA [Suspect]
     Dosage: 18 MCG
     Route: 055
     Dates: start: 200803
  2. EFFEXOR XR [Concomitant]
     Dosage: 225 MG
     Route: 048
  3. ACIPHEX [Concomitant]
     Route: 048
  4. SYMBICORT [Concomitant]
     Route: 055
  5. DIOVAN [Concomitant]
     Route: 048

REACTIONS (1)
  - Death [Fatal]
